FAERS Safety Report 10103030 (Version 2)
Quarter: 2014Q2

REPORT INFORMATION
  Report Type: Spontaneous
  Country: IT (occurrence: IT)
  Receive Date: 20140424
  Receipt Date: 20140508
  Transmission Date: 20141212
  Serious: Yes (Hospitalization)
  Sender: FDA-Public Use
  Company Number: IT-BRISTOL-MYERS SQUIBB COMPANY-20627006

PATIENT
  Age: 71 Year
  Sex: Female

DRUGS (1)
  1. BARACLUDE TABS 1.0 MG [Suspect]
     Indication: HEPATITIS B
     Route: 048
     Dates: start: 20140121, end: 20140210

REACTIONS (2)
  - Blood lactic acid increased [Recovering/Resolving]
  - Renal injury [Recovering/Resolving]
